FAERS Safety Report 14744213 (Version 1)
Quarter: 2018Q2

REPORT INFORMATION
  Report Type: Spontaneous
  Country: US (occurrence: US)
  Receive Date: 20180411
  Receipt Date: 20180411
  Transmission Date: 20180711
  Serious: Yes (Hospitalization, Other)
  Sender: FDA-Public Use
  Company Number: US-CIPLA LTD.-2018US14879

PATIENT

DRUGS (12)
  1. VALACYCLOVIR [Suspect]
     Active Substance: VALACYCLOVIR HYDROCHLORIDE
     Indication: VARICELLA VIRUS TEST POSITIVE
     Dosage: 1 G, TID
     Route: 048
  2. PREDNISONE. [Suspect]
     Active Substance: PREDNISONE
     Indication: NECROTISING RETINITIS
  3. VALACYCLOVIR [Suspect]
     Active Substance: VALACYCLOVIR HYDROCHLORIDE
     Indication: NECROTISING RETINITIS
  4. FOSCARNET [Suspect]
     Active Substance: FOSCARNET
     Dosage: 90 MG/KG, QD
     Route: 042
  5. FOSCARNET [Suspect]
     Active Substance: FOSCARNET
     Dosage: 2.4 MCG/0.1 ML
  6. FOSCARNET [Suspect]
     Active Substance: FOSCARNET
     Dosage: 60 MG/KG, EVERY 8 HOURLY
     Route: 042
  7. PREDNISONE. [Suspect]
     Active Substance: PREDNISONE
     Indication: VARICELLA VIRUS TEST POSITIVE
     Dosage: 60 MG, QD
     Route: 048
  8. FOSCARNET [Suspect]
     Active Substance: FOSCARNET
     Dosage: 60 MG/KG, QD
     Route: 042
  9. FOSCARNET [Suspect]
     Active Substance: FOSCARNET
     Indication: RETINITIS
     Dosage: 60 MG/KG, EVERY 8 HOURLY
     Route: 042
  10. ACYCLOVIR. [Suspect]
     Active Substance: ACYCLOVIR
     Indication: VARICELLA ZOSTER VIRUS INFECTION
     Dosage: 10 MG/KG, EVERY 8 HOURLY
     Route: 042
  11. ACYCLOVIR. [Suspect]
     Active Substance: ACYCLOVIR
     Indication: NECROTISING RETINITIS
  12. FOSCARNET [Suspect]
     Active Substance: FOSCARNET
     Dosage: 2.4 MCG/0.1 ML

REACTIONS (2)
  - Disease progression [Unknown]
  - Retinitis [Recovering/Resolving]
